FAERS Safety Report 4901095-9 (Version None)
Quarter: 2006Q1

REPORT INFORMATION
  Report Type: 
  Country: None (occurrence: None)
  Receive Date: 20060113
  Receipt Date: 20051130
  Transmission Date: 20060701
  Serious: No
  Sender: FDA-Public Use
  Company Number: 2005SP004191

PATIENT
  Age: 18 Year
  Sex: Male

DRUGS (5)
  1. LUNESTA [Suspect]
     Indication: INSOMNIA
     Dosage: 4 MG HS ORAL; 6 MG HS ORAL
     Route: 048
     Dates: start: 20051101, end: 20051101
  2. LUNESTA [Suspect]
     Indication: INSOMNIA
     Dosage: 4 MG HS ORAL; 6 MG HS ORAL
     Route: 048
     Dates: start: 20051101
  3. ZOLOFT [Concomitant]
  4. CONCERTA [Concomitant]
  5. THORAZINE [Concomitant]

REACTIONS (2)
  - DRUG INEFFECTIVE [None]
  - INSOMNIA [None]
